FAERS Safety Report 15994952 (Version 2)
Quarter: 2021Q1

REPORT INFORMATION
  Report Type: Spontaneous
  Country: US (occurrence: US)
  Receive Date: 20190222
  Receipt Date: 20210119
  Transmission Date: 20210419
  Serious: Yes (Death, Hospitalization)
  Sender: FDA-Public Use
  Company Number: US-TORRENT-00007693

PATIENT
  Age: 19 Year
  Sex: Male

DRUGS (1)
  1. LAMOTRIGINE. [Suspect]
     Active Substance: LAMOTRIGINE
     Indication: PRODUCT USED FOR UNKNOWN INDICATION
     Route: 048

REACTIONS (9)
  - Aspiration [Fatal]
  - Respiratory arrest [Fatal]
  - Atrioventricular block complete [Fatal]
  - Sinus tachycardia [Unknown]
  - Electrocardiogram QRS complex prolonged [Fatal]
  - Toxicity to various agents [Fatal]
  - Seizure [Fatal]
  - Overdose [Fatal]
  - Multiple organ dysfunction syndrome [Fatal]
